FAERS Safety Report 4652033-8 (Version None)
Quarter: 2005Q2

REPORT INFORMATION
  Report Type: 
  Country: None (occurrence: None)
  Receive Date: 20050502
  Receipt Date: 20050502
  Transmission Date: 20051028
  Serious: Yes (Death)
  Sender: FDA-Public Use
  Company Number: None

PATIENT
  Sex: Male
  Weight: 69.4003 kg

DRUGS (8)
  1. COUMADIN [Suspect]
  2. JANTOVEN [Suspect]
  3. ASPIRIN [Concomitant]
  4. TENORMIN [Concomitant]
  5. PEPCID [Concomitant]
  6. LEXAPRO [Concomitant]
  7. LIPITOR [Concomitant]
  8. IMDUR [Concomitant]

REACTIONS (4)
  - COAGULOPATHY [None]
  - MUSCLE HAEMORRHAGE [None]
  - NECROSIS [None]
  - PNEUMONIA STAPHYLOCOCCAL [None]
